FAERS Safety Report 19304103 (Version 1)
Quarter: 2021Q2

REPORT INFORMATION
  Report Type: Spontaneous
  Country: AR (occurrence: AR)
  Receive Date: 20210526
  Receipt Date: 20210526
  Transmission Date: 20210717
  Serious: Yes (Other)
  Sender: FDA-Public Use
  Company Number: AR-SUN PHARMACEUTICAL INDUSTRIES LTD-2021R1-297988

PATIENT
  Age: 17 Year
  Sex: Female

DRUGS (4)
  1. QUETIAPINE. [Interacting]
     Active Substance: QUETIAPINE
     Indication: ANTIDEPRESSANT THERAPY
     Dosage: 200 MILLIGRAM, DAILY
     Route: 065
  2. CLONAZEPAM. [Interacting]
     Active Substance: CLONAZEPAM
     Indication: ANTIDEPRESSANT THERAPY
     Dosage: 1 GRAM, DAILY
     Route: 065
  3. ISONIAZID. [Interacting]
     Active Substance: ISONIAZID
     Indication: ANTIBIOTIC PROPHYLAXIS
     Dosage: 300 MILLIGRAM, DAILY
     Route: 065
  4. SERTRALINE [Suspect]
     Active Substance: SERTRALINE HYDROCHLORIDE
     Indication: ANTIDEPRESSANT THERAPY
     Dosage: 150 MILLIGRAM, DAILY
     Route: 065

REACTIONS (3)
  - Neurotoxicity [Recovered/Resolved]
  - Drug interaction [Unknown]
  - Therapy cessation [Unknown]
